FAERS Safety Report 21229876 (Version 1)
Quarter: 2022Q3

REPORT INFORMATION
  Report Type: Report from Study
  Country: US (occurrence: US)
  Receive Date: 20220818
  Receipt Date: 20220818
  Transmission Date: 20221026
  Serious: Yes (Hospitalization)
  Sender: FDA-Public Use
  Company Number: US-PFIZER INC-PV202200043015

PATIENT
  Age: 35 Year
  Sex: Male
  Weight: 124.4 kg

DRUGS (26)
  1. VINCRISTINE SULFATE [Suspect]
     Active Substance: VINCRISTINE SULFATE
     Indication: B-cell type acute leukaemia
     Dosage: 0.4 MG/M2/DAY CIV DAYS 1-4 Q28 DAYS
     Dates: start: 20220730, end: 20220803
  2. INOTUZUMAB OZOGAMICIN [Suspect]
     Active Substance: INOTUZUMAB OZOGAMICIN
     Indication: B-cell type acute leukaemia
     Dosage: 0.6 MG/M2 ON DAY 8; 0.3 MG/M2 ON DAY 15, DAY 8, 15
     Dates: start: 20220805
  3. DOXORUBICIN HYDROCHLORIDE [Suspect]
     Active Substance: DOXORUBICIN HYDROCHLORIDE
     Indication: B-cell type acute leukaemia
     Dosage: 10 MG/M2/DAY CIV DAYS 1-4 Q28 DAYS
     Dates: start: 20220730, end: 20220803
  4. ETOPOSIDE [Suspect]
     Active Substance: ETOPOSIDE
     Indication: B-cell type acute leukaemia
     Dosage: 50 MG/M2/DAY CIV DAYS 1-4 Q28 DAYS
     Dates: start: 20220730, end: 20220803
  5. CYCLOPHOSPHAMIDE [Suspect]
     Active Substance: CYCLOPHOSPHAMIDE
     Indication: B-cell type acute leukaemia
     Dosage: 750 MG/M2 IV DAY 5 Q28 DAYS
     Route: 042
     Dates: start: 20220804, end: 20220804
  6. ZOVIRAX [Concomitant]
     Active Substance: ACYCLOVIR
     Dosage: 800 MG, 2 TIMES DAILY
     Route: 048
  7. ALLOPURINOL [Concomitant]
     Active Substance: ALLOPURINOL
     Dosage: TAKE 1 TABLET BY MOUTH 2 TIMES A DAY
     Route: 048
  8. ALUMINIUM/MAGNESIUM HYDROXIDE/SIMETICONE [Concomitant]
     Dosage: 200-200-20 MG/5ML SUSPENSION 20 ML, ORAL, 4 TIMES DAILY PRN
     Route: 048
  9. AMLODIPINE [Concomitant]
     Active Substance: AMLODIPINE BESYLATE
     Dosage: AKE 1 TABLET BY MOUTH DAILY
     Route: 048
  10. FAMOTIDINE [Concomitant]
     Active Substance: FAMOTIDINE
     Dosage: TAKE 1 TABLET BY MOUTH EVERY EVENING
     Route: 048
  11. DIFLUCAN [Concomitant]
     Active Substance: FLUCONAZOLE
     Dosage: 200 MG, DAILY
     Route: 048
  12. HYDROMORPHONE [Concomitant]
     Active Substance: HYDROMORPHONE
     Indication: Pain
     Dosage: TAKE 1 TABLET BY MOUTH EVERY 8 HOURS AS NEEDED
     Route: 048
  13. INSULIN LISPRO [Concomitant]
     Active Substance: INSULIN LISPRO
     Dosage: INJECT 15-27 UNITS THREE TIMES DAILY BEFORE MEALS PER SLIDING SCALE. DISCARD PEN 28 DAYS AFTER FIRST
  14. LEVAQUIN [Concomitant]
     Active Substance: LEVOFLOXACIN
     Dosage: 750 MG, DAILY, TAKE DAILY WHEN ANC LESS THAN 500 PER MD INSTRUCTION
     Route: 048
  15. METOCLOPRAMIDE [Concomitant]
     Active Substance: METOCLOPRAMIDE
     Dosage: TAKE 1 TABLET BY MOUTH EVERY 12 HOURS
     Route: 048
  16. OLANZAPINE [Concomitant]
     Active Substance: OLANZAPINE
     Indication: Nausea
     Dosage: TAKE 1 TABLET BY MOUTH AT BEDTIME AS NEEDED FOR NAUSEA OR HICCUPS FOR UP TO 15 DAYS
     Route: 048
  17. OLANZAPINE [Concomitant]
     Active Substance: OLANZAPINE
     Indication: Hiccups
  18. ONDANSETRON [Concomitant]
     Active Substance: ONDANSETRON
     Indication: Nausea
     Dosage: DISSOLVE 1 TABLET ON TOP OF TONGUE AND SWALLOW EVERY 8 HOURS AS NEEDED
  19. ONDANSETRON [Concomitant]
     Active Substance: ONDANSETRON
     Indication: Vomiting
  20. PANTOPRAZOLE [Concomitant]
     Active Substance: PANTOPRAZOLE
     Dosage: TAKE 1 TABLET BY MOUTH 1 TIME A DAY ON AN EMPTY STOMACH
     Route: 048
  21. COMPAZINE [Concomitant]
     Active Substance: PROCHLORPERAZINE MALEATE
     Dosage: 10 MG, EVERY 6 HOURS PRN
     Route: 048
  22. SENNOSIDES A AND B [Concomitant]
     Active Substance: SENNOSIDES A AND B
     Indication: Constipation
     Dosage: TAKE 1-2 TABLETS AT BEDTIME AS NEEDED
  23. SULFAMETHOXAZOLE\TRIMETHOPRIM [Concomitant]
     Active Substance: SULFAMETHOXAZOLE\TRIMETHOPRIM
     Dosage: 1 TABLET, ORAL, 2 TIMES DAILY ON MON AND TUES, DO NOT TAKE FIRST DOSE UNTIL DIRECTED BY CLINICAL TEA
     Route: 048
  24. SUMATRIPTAN [Concomitant]
     Active Substance: SUMATRIPTAN
     Indication: Migraine
     Dosage: TAKE 1 TABLET BY MOUTH ONE TIME AS NEEDED FOR MIGRAINES. MAY REPEAT DOSE ONCE IN 2 HOURS IF NO RELIE
     Route: 048
  25. TAMSULOSIN [Concomitant]
     Active Substance: TAMSULOSIN
     Dosage: TAKE 1 CAPSULE BY MOUTH 1 TIME A DAY
     Route: 048
  26. TRAZODONE [Concomitant]
     Active Substance: TRAZODONE HYDROCHLORIDE
     Dosage: TAKE 1 TABLET BY MOUTH 1 TIME A DAY AT BEDTIME
     Route: 048

REACTIONS (1)
  - Febrile neutropenia [Not Recovered/Not Resolved]

NARRATIVE: CASE EVENT DATE: 20220812
